FAERS Safety Report 25508908 (Version 2)
Quarter: 2025Q3

REPORT INFORMATION
  Report Type: Report from Study
  Country: US (occurrence: US)
  Receive Date: 20250703
  Receipt Date: 20250810
  Transmission Date: 20251020
  Serious: Yes (Other)
  Sender: ALEXION PHARMACEUTICALS
  Company Number: US-AstraZeneca-CH-00900670A

PATIENT
  Sex: Male

DRUGS (3)
  1. ACALABRUTINIB [Suspect]
     Active Substance: ACALABRUTINIB
     Indication: Chronic lymphocytic leukaemia
     Dosage: 100 MILLIGRAM, BID
     Dates: start: 202503
  2. VENCLEXTA [Concomitant]
     Active Substance: VENETOCLAX
     Route: 065
  3. SIMETHICONE (DIMETHICONE) [Concomitant]
     Active Substance: DIMETHICONE
     Route: 065

REACTIONS (7)
  - Hypertrophic cardiomyopathy [Unknown]
  - Mobility decreased [Unknown]
  - General physical health deterioration [Unknown]
  - Somnolence [Unknown]
  - Asthenia [Unknown]
  - Red blood cell count decreased [Unknown]
  - Flatulence [Unknown]
